FAERS Safety Report 13755909 (Version 2)
Quarter: 2017Q3

REPORT INFORMATION
  Report Type: Report from Study
  Country: BR (occurrence: BR)
  Receive Date: 20170714
  Receipt Date: 20170727
  Transmission Date: 20171127
  Serious: Yes (Other)
  Sender: FDA-Public Use
  Company Number: PHHY2017BR103103

PATIENT
  Sex: Male

DRUGS (6)
  1. ACLASTA [Suspect]
     Active Substance: ZOLEDRONIC ACID
     Indication: OSTEOPOROSIS
     Dosage: 1 DF, Q12MO (STARTED THREE YEARS AGO)
     Route: 042
  2. ACLASTA [Suspect]
     Active Substance: ZOLEDRONIC ACID
     Dosage: 1 DF, Q12MO (STOPPED IT IN 2016)
     Route: 042
     Dates: start: 2016
  3. CALCIUM [Concomitant]
     Active Substance: CALCIUM
     Indication: PRODUCT USED FOR UNKNOWN INDICATION
     Dosage: BID (STARTED TWO YEARS AGO)
     Route: 048
  4. BIOFLAN [Concomitant]
     Indication: OSTEOARTHRITIS
     Dosage: BID (STARTED 2 YEARS AGO)
     Route: 048
  5. GABANEURIN [Concomitant]
     Active Substance: GABAPENTIN
     Indication: CARPAL TUNNEL SYNDROME
     Dosage: QD (STARTED TWO YEARS AGO)
     Route: 048
  6. GLUCOREUMIN [Concomitant]
     Indication: OSTEOARTHRITIS
     Dosage: AFTER LUNCH (STARTED ONE YEAR AGO)
     Route: 048

REACTIONS (2)
  - Malaise [Unknown]
  - Cholelithiasis [Recovering/Resolving]
